FAERS Safety Report 8127297-9 (Version None)
Quarter: 2011Q4

REPORT INFORMATION
  Report Type: 
  Country: None (occurrence: None)
  Receive Date: 20111227
  Receipt Date: 20111118
  Transmission Date: 20120403
  Serious: No
  Sender: FDA-Public Use
  Company Number: PHEH2011US009861

PATIENT
  Sex: Female
  Weight: 77.1 kg

DRUGS (2)
  1. GILENYA [Suspect]
     Indication: MULTIPLE SCLEROSIS
     Dosage: 0.5 MG, QD, ORAL; 0.5 MG, QD, ORAL
     Route: 048
     Dates: start: 20111110
  2. AVONEX [Concomitant]

REACTIONS (1)
  - OEDEMA PERIPHERAL [None]
